FAERS Safety Report 6678098-X (Version None)
Quarter: 2010Q2

REPORT INFORMATION
  Report Type: 
  Country: None (occurrence: None)
  Receive Date: 20100412
  Receipt Date: 20100402
  Transmission Date: 20101027
  Serious: Yes (Hospitalization)
  Sender: FDA-Public Use
  Company Number: JP-ROCHE-688700

PATIENT
  Sex: Male
  Weight: 47 kg

DRUGS (9)
  1. AVASTIN [Suspect]
     Indication: RECTAL CANCER
     Dosage: NOTE: SEVEN TIMES,
     Route: 041
     Dates: start: 20091109, end: 20100208
  2. IRINOTECAN HYDROCHLORIDE [Concomitant]
     Dosage: NOTE: SEVEN TIMES
     Route: 041
     Dates: start: 20091109, end: 20100208
  3. IRINOTECAN HYDROCHLORIDE [Concomitant]
     Route: 041
     Dates: start: 20100309
  4. FLUOROURACIL [Concomitant]
     Dosage: NOTE: SEVEN TIMES;ROUTE: INTRAVENOUS BOLUS
     Route: 042
     Dates: start: 20091109, end: 20100208
  5. FLUOROURACIL [Concomitant]
     Dosage: ROUTE: INTRAVENOUS DRIP; NOTE: SEVEN TIMES
     Route: 042
     Dates: start: 20091109, end: 20100201
  6. FLUOROURACIL [Concomitant]
     Dosage: ROUTE: INTRAVENOUS BOLUS
     Route: 042
     Dates: start: 20100309
  7. FLUOROURACIL [Concomitant]
     Dosage: ROUTE: INTRAVENOUS DRIP
     Route: 042
     Dates: start: 20100309
  8. CALCIUM LEVOFOLINATE [Concomitant]
     Dosage: NOTE: SEVEN TIMES
     Route: 041
     Dates: start: 20091109, end: 20100208
  9. CALCIUM LEVOFOLINATE [Concomitant]
     Route: 041
     Dates: start: 20100309

REACTIONS (4)
  - DIPLOPIA [None]
  - HEADACHE [None]
  - INTRACRANIAL VENOUS SINUS THROMBOSIS [None]
  - VOMITING [None]
